FAERS Safety Report 19474319 (Version 10)
Quarter: 2022Q2

REPORT INFORMATION
  Report Type: Report from Study
  Country: GB (occurrence: GB)
  Receive Date: 20210629
  Receipt Date: 20220615
  Transmission Date: 20220721
  Serious: Yes (Hospitalization, Other)
  Sender: FDA-Public Use
  Company Number: GB-MHRA-ADR 25565344

PATIENT
  Age: 55 Year
  Sex: Male

DRUGS (2)
  1. COSENTYX [Suspect]
     Active Substance: SECUKINUMAB
     Indication: Psoriatic arthropathy
     Dosage: 300 MG, QW (WK 0,1,2,3,4 THEN QMO)
     Route: 058
     Dates: start: 20200206
  2. COSENTYX [Suspect]
     Active Substance: SECUKINUMAB
     Dosage: 300 MG, QMO
     Route: 058
     Dates: end: 20211226

REACTIONS (20)
  - Arthritis [Recovering/Resolving]
  - Pain [Recovering/Resolving]
  - Body temperature increased [Recovering/Resolving]
  - Campylobacter infection [Recovering/Resolving]
  - Malaise [Recovering/Resolving]
  - Vertigo [Recovering/Resolving]
  - Dupuytren^s contracture [Unknown]
  - Ophthalmic migraine [Recovering/Resolving]
  - Blindness transient [Recovering/Resolving]
  - Eye oedema [Recovering/Resolving]
  - Skin infection [Recovering/Resolving]
  - Acne [Recovering/Resolving]
  - Blister [Recovering/Resolving]
  - Acne pustular [Recovering/Resolving]
  - Actinic keratosis [Unknown]
  - Myxoid cyst [Unknown]
  - Injection site pain [Unknown]
  - Blister [Recovering/Resolving]
  - Tongue blistering [Recovering/Resolving]
  - Nasopharyngitis [Recovering/Resolving]

NARRATIVE: CASE EVENT DATE: 20210401
